FAERS Safety Report 6328208-9 (Version None)
Quarter: 2009Q3

REPORT INFORMATION
  Report Type: 
  Country: None (occurrence: None)
  Receive Date: 20090825
  Receipt Date: 20081223
  Transmission Date: 20100115
  Serious: No
  Sender: FDA-Public Use
  Company Number: US-ABBOTT-08P-163-0494809-00

PATIENT
  Sex: Female
  Weight: 77.18 kg

DRUGS (11)
  1. SYNTHROID [Suspect]
     Indication: HYPOTHYROIDISM
  2. LANTAS [Concomitant]
     Indication: DIABETES MELLITUS
     Dates: start: 20060101
  3. TYL #3 [Concomitant]
     Indication: PAIN
  4. XANAX [Concomitant]
     Indication: ANXIETY
     Dosage: 1 IN AM, 1 AT NOON, 2 AT NIGHT
  5. INDERAL LA [Concomitant]
     Indication: TREMOR
  6. FUROSEMIDE [Concomitant]
     Indication: DRUG USE FOR UNKNOWN INDICATION
  7. ACIPHEX [Concomitant]
     Indication: GASTRIC DISORDER
  8. PREMARIN [Concomitant]
     Indication: HORMONE REPLACEMENT THERAPY
  9. DICYCLOMINE [Concomitant]
     Indication: DRUG USE FOR UNKNOWN INDICATION
  10. TRICOR [Concomitant]
     Indication: BLOOD CHOLESTEROL
  11. ZETIA [Concomitant]
     Indication: BLOOD CHOLESTEROL

REACTIONS (1)
  - BLOOD GLUCOSE INCREASED [None]
